FAERS Safety Report 19799306 (Version 3)
Quarter: 2021Q3

REPORT INFORMATION
  Report Type: Spontaneous
  Country: US (occurrence: US)
  Receive Date: 20210907
  Receipt Date: 20210927
  Transmission Date: 20211014
  Serious: Yes (Other)
  Sender: FDA-Public Use
  Company Number: US-BIOGEN-2021BI01046496

PATIENT
  Sex: Female

DRUGS (1)
  1. TYSABRI [Suspect]
     Active Substance: NATALIZUMAB
     Indication: MULTIPLE SCLEROSIS
     Route: 065
     Dates: start: 20160328, end: 20170810

REACTIONS (5)
  - Anxiety [Not Recovered/Not Resolved]
  - Nervousness [Unknown]
  - Blindness [Unknown]
  - Injection site bruising [Not Recovered/Not Resolved]
  - Fear [Unknown]
